FAERS Safety Report 10279652 (Version 1)
Quarter: 2014Q3

REPORT INFORMATION
  Report Type: Spontaneous
  Country: FR (occurrence: None)
  Receive Date: 20140702
  Receipt Date: 20140702
  Transmission Date: 20150326
  Serious: Yes (Hospitalization)
  Sender: FDA-Public Use
  Company Number: 2411529

PATIENT
  Age: 36 Year
  Sex: Female

DRUGS (6)
  1. (SPECIAFOLDINE) [Concomitant]
  2. (KESTIN) [Concomitant]
  3. (SINGULAIR) [Concomitant]
  4. PAMIDRONIC ACID [Suspect]
     Active Substance: PAMIDRONIC ACID
     Indication: PSORIATIC ARTHROPATHY
     Dosage: 03/06/2014 06:00 PM - 03/07/2014 ( 2 DAYS ) ?60 MG (1 DAY)??(NOT OTHERWISE SPECIFIED)?
     Route: 042
     Dates: start: 20140306, end: 20140307
  5. (ZOELY) [Concomitant]
  6. (METOJECT) [Concomitant]

REACTIONS (3)
  - Venous thrombosis limb [None]
  - Vena cava thrombosis [None]
  - Thrombophlebitis superficial [None]

NARRATIVE: CASE EVENT DATE: 20140310
